FAERS Safety Report 10207652 (Version 1)
Quarter: 2014Q2

REPORT INFORMATION
  Report Type: Spontaneous
  Country: IT (occurrence: IT)
  Receive Date: 20140530
  Receipt Date: 20140530
  Transmission Date: 20141212
  Serious: Yes (Hospitalization)
  Sender: FDA-Public Use
  Company Number: IT-WATSON-2014-10992

PATIENT
  Age: 47 Year
  Sex: Female

DRUGS (1)
  1. LORAZEPAM (UNKNOWN) [Suspect]
     Indication: INSOMNIA
     Dosage: 25 MG, DAILY
     Route: 048
     Dates: start: 20120416, end: 20120416

REACTIONS (1)
  - Drug dependence [Recovering/Resolving]
